FAERS Safety Report 5340252-7 (Version None)
Quarter: 2007Q2

REPORT INFORMATION
  Report Type: 
  Country: None (occurrence: None)
  Receive Date: 20070531
  Receipt Date: 20070523
  Transmission Date: 20071010
  Serious: Yes (Other)
  Sender: FDA-Public Use
  Company Number: US-ASTRAZENECA-2007UW12781

PATIENT
  Sex: Female

DRUGS (2)
  1. ARIMIDEX [Suspect]
     Indication: BREAST CANCER RECURRENT
     Route: 048
     Dates: start: 20050801, end: 20060501
  2. SYNTHROID [Concomitant]

REACTIONS (13)
  - AMNESIA [None]
  - ARTHRALGIA [None]
  - ASTHENIA [None]
  - CHOLELITHIASIS [None]
  - DEPRESSION [None]
  - HEPATIC ENZYME ABNORMAL [None]
  - HOT FLUSH [None]
  - ILL-DEFINED DISORDER [None]
  - ILLUSION [None]
  - MOOD ALTERED [None]
  - MUSCULAR WEAKNESS [None]
  - PAIN [None]
  - PHARYNGOLARYNGEAL PAIN [None]
